FAERS Safety Report 13177259 (Version 2)
Quarter: 2017Q3

REPORT INFORMATION
  Report Type: Report from Study
  Country: US (occurrence: US)
  Receive Date: 20170201
  Receipt Date: 20170731
  Transmission Date: 20171127
  Serious: No
  Sender: FDA-Public Use
  Company Number: US-EXELIXIS-CABO-16007575

PATIENT
  Sex: Male

DRUGS (9)
  1. CABOMETYX [Suspect]
     Active Substance: CABOZANTINIB S-MALATE
     Indication: RENAL CANCER
     Dosage: 60 MG, QD
     Route: 048
     Dates: start: 20160928, end: 201611
  2. CABOMETYX [Suspect]
     Active Substance: CABOZANTINIB S-MALATE
     Indication: METASTASES TO LUNG
  3. VITAMIN D3 [Concomitant]
     Active Substance: CHOLECALCIFEROL
  4. CABOMETYX [Suspect]
     Active Substance: CABOZANTINIB S-MALATE
     Indication: METASTASES TO CENTRAL NERVOUS SYSTEM
     Dosage: 40 MG, QD
     Route: 048
     Dates: start: 201611
  5. CALCIUM [Concomitant]
     Active Substance: CALCIUM
  6. MULTIVITAMIN [Concomitant]
     Active Substance: VITAMINS
  7. NORVASC [Concomitant]
     Active Substance: AMLODIPINE BESYLATE
  8. CABOMETYX [Suspect]
     Active Substance: CABOZANTINIB S-MALATE
     Indication: METASTASES TO BONE
  9. SYNTHROID [Concomitant]
     Active Substance: LEVOTHYROXINE SODIUM

REACTIONS (3)
  - Decreased appetite [Unknown]
  - Fatigue [Not Recovered/Not Resolved]
  - Oral pain [Not Recovered/Not Resolved]
